FAERS Safety Report 20462580 (Version 2)
Quarter: 2022Q1

REPORT INFORMATION
  Report Type: Report from Study
  Country: US (occurrence: US)
  Receive Date: 20220211
  Receipt Date: 20220218
  Transmission Date: 20220424
  Serious: Yes (Life-Threatening, Hospitalization, Other)
  Sender: FDA-Public Use
  Company Number: US-BRISTOL-MYERS SQUIBB COMPANY-BMS-2022-019289

PATIENT
  Age: 60 Year
  Sex: Male
  Weight: 71.8 kg

DRUGS (3)
  1. NIVOLUMAB [Suspect]
     Active Substance: NIVOLUMAB
     Indication: Oesophageal carcinoma
     Dosage: 480 MILLIGRAM, Q4WK
     Route: 042
     Dates: start: 20200408, end: 20200707
  2. RUCAPARIB [Suspect]
     Active Substance: RUCAPARIB
     Indication: Oesophageal carcinoma
     Dosage: 300 MILLIGRAM, BID
     Route: 048
     Dates: start: 20200408, end: 20200604
  3. RAMUCIRUMAB [Suspect]
     Active Substance: RAMUCIRUMAB
     Indication: Oesophageal carcinoma
     Dosage: 8 MILLIGRAM/KILOGRAM, Q2WK
     Route: 042
     Dates: start: 20200408, end: 20200721

REACTIONS (1)
  - Hypothyroidism [Unknown]

NARRATIVE: CASE EVENT DATE: 20200827
